FAERS Safety Report 7262276-5 (Version None)
Quarter: 2011Q1

REPORT INFORMATION
  Report Type: 
  Country: None (occurrence: None)
  Receive Date: 20110130
  Receipt Date: 20101116
  Transmission Date: 20110831
  Serious: Yes (Other)
  Sender: FDA-Public Use
  Company Number: US-ABBOTT-10P-163-0685598-00

PATIENT
  Age: 5 Year
  Sex: Female
  Weight: 22 kg

DRUGS (2)
  1. HUMIRA [Suspect]
     Indication: JUVENILE ARTHRITIS
     Dosage: ONE DOSE
     Route: 058
     Dates: start: 20100317, end: 20100317
  2. HUMIRA [Suspect]
     Indication: UVEITIS

REACTIONS (3)
  - HYPERSENSITIVITY [None]
  - URTICARIA [None]
  - PRURITUS ALLERGIC [None]
